FAERS Safety Report 5058413-3 (Version None)
Quarter: 2006Q2

REPORT INFORMATION
  Report Type: 
  Country: None (occurrence: None)
  Receive Date: 20060626
  Receipt Date: 20060417
  Transmission Date: 20061013
  Serious: Yes (Other)
  Sender: FDA-Public Use
  Company Number: PHEH2006US05014

PATIENT
  Age: 47 Year
  Sex: Female

DRUGS (5)
  1. FOCALIN XR [Suspect]
     Indication: ATTENTION DEFICIT/HYPERACTIVITY DISORDER
     Dosage: THREE 5 MG, QD, ORAL
     Route: 048
  2. SYNTHROID [Concomitant]
  3. WELLBUTRIN [Concomitant]
  4. NAPROXEN [Concomitant]
  5. FLEXERIL [Concomitant]

REACTIONS (3)
  - BLOOD PRESSURE INCREASED [None]
  - HANGOVER [None]
  - HEART RATE INCREASED [None]
